FAERS Safety Report 15708559 (Version 1)
Quarter: 2018Q4

REPORT INFORMATION
  Report Type: Spontaneous
  Country: US (occurrence: US)
  Receive Date: 20181211
  Receipt Date: 20181211
  Transmission Date: 20190205
  Serious: No
  Sender: FDA-Public Use
  Company Number: US-PFIZER INC-2018504367

PATIENT
  Age: 54 Year

DRUGS (3)
  1. PENICILLIN-V (PHENOXYMETHYLPENICILLIN) [Suspect]
     Active Substance: PENICILLIN V
     Dosage: UNK
  2. POTASSIUM ACETATE. [Suspect]
     Active Substance: POTASSIUM ACETATE
     Dosage: UNK
  3. NOVOCAIN [Suspect]
     Active Substance: PROCAINE HYDROCHLORIDE
     Dosage: UNK

REACTIONS (1)
  - Drug hypersensitivity [Unknown]
